FAERS Safety Report 5509916-6 (Version None)
Quarter: 2007Q4

REPORT INFORMATION
  Report Type: 
  Country: None (occurrence: None)
  Receive Date: 20071106
  Receipt Date: 20071023
  Transmission Date: 20080405
  Serious: Yes (Death, Other)
  Sender: FDA-Public Use
  Company Number: 2007JP004876

PATIENT
  Age: 68 Year
  Sex: Female

DRUGS (5)
  1. PROGRAF [Suspect]
     Indication: RHEUMATOID ARTHRITIS
     Dates: start: 20060626
  2. PREDNISONE [Concomitant]
  3. METHOTREXATE [Concomitant]
  4. BUCILLAMINE (BUCILLAMINE) [Concomitant]
  5. ETANERCEPT (ETANERCEPT) [Concomitant]

REACTIONS (5)
  - CHOLECYSTITIS ACUTE [None]
  - PANCREATITIS ACUTE [None]
  - PERITONITIS [None]
  - PNEUMONIA FUNGAL [None]
  - SEPTIC SHOCK [None]
